FAERS Safety Report 6398356-6 (Version None)
Quarter: 2009Q4

REPORT INFORMATION
  Report Type: 
  Country: None (occurrence: None)
  Receive Date: 20091013
  Receipt Date: 20091001
  Transmission Date: 20100525
  Serious: Yes (Death)
  Sender: FDA-Public Use
  Company Number: KR-PFIZER INC-2009276629

PATIENT
  Age: 50 Year

DRUGS (5)
  1. VORICONAZOLE [Suspect]
     Indication: ASPERGILLOSIS
     Dosage: 200 MG, 2X/DAY
     Route: 048
     Dates: start: 20060327, end: 20060331
  2. VORICONAZOLE [Suspect]
     Dosage: 200 MG, 2X/DAY
     Route: 048
     Dates: start: 20060428, end: 20060517
  3. VORICONAZOLE [Suspect]
     Dosage: 200 MG, 2X/DAY
     Route: 048
     Dates: start: 20060617, end: 20060621
  4. VANCOMYCIN [Concomitant]
     Indication: ANTIFUNGAL TREATMENT
     Dosage: 1 G, 2X/DAY
     Route: 042
     Dates: start: 20060617, end: 20060617
  5. CITOPCIN [Concomitant]
     Indication: ANTIFUNGAL TREATMENT
     Dosage: 200 MG, 2X/DAY
     Route: 042
     Dates: start: 20060617, end: 20060617

REACTIONS (1)
  - DEATH [None]
